FAERS Safety Report 5872923-8 (Version None)
Quarter: 2008Q3

REPORT INFORMATION
  Report Type: 
  Country: None (occurrence: None)
  Receive Date: 20080905
  Receipt Date: 20080825
  Transmission Date: 20090109
  Serious: Yes (Hospitalization)
  Sender: FDA-Public Use
  Company Number: AU-PFIZER INC-2008071227

PATIENT
  Sex: Female
  Weight: 69 kg

DRUGS (1)
  1. CHANTIX [Suspect]
     Indication: SMOKING CESSATION THERAPY
     Dosage: DAILY DOSE:2MG-FREQ:DAILY
     Route: 048
     Dates: start: 20080430, end: 20080610

REACTIONS (3)
  - BIPOLAR I DISORDER [None]
  - INCORRECT DOSE ADMINISTERED [None]
  - PSYCHOTIC DISORDER [None]
